FAERS Safety Report 23353117 (Version 1)
Quarter: 2023Q4

REPORT INFORMATION
  Report Type: Spontaneous
  Country: US (occurrence: None)
  Receive Date: 20231230
  Receipt Date: 20231230
  Transmission Date: 20240109
  Serious: No
  Sender: FDA-Public Use
  Company Number: 2023A289984

PATIENT
  Age: 19499 Day
  Sex: Female

DRUGS (2)
  1. FARXIGA [Suspect]
     Active Substance: DAPAGLIFLOZIN PROPANEDIOL
     Route: 048
  2. JARDIANCE [Concomitant]
     Active Substance: EMPAGLIFLOZIN

REACTIONS (3)
  - Urinary tract infection [Unknown]
  - Vulvovaginal mycotic infection [Unknown]
  - Candida infection [Unknown]

NARRATIVE: CASE EVENT DATE: 20231216
